FAERS Safety Report 8734916 (Version 2)
Quarter: 2012Q4

REPORT INFORMATION
  Report Type: 
  Country: US (occurrence: US)
  Receive Date: 20120821
  Receipt Date: 20121205
  Transmission Date: 20130627
  Serious: Yes (Hospitalization)
  Sender: FDA-Public Use
  Company Number: US-MPIJNJ-2012-05725

PATIENT
  Age: 62 Year
  Sex: Female
  Weight: 88.39 kg

DRUGS (1)
  1. VELCADE [Suspect]
     Indication: MULTIPLE MYELOMA
     Dosage: 2.6 mg, Cyclic
     Route: 042
     Dates: start: 20120604

REACTIONS (4)
  - Tachycardia [Unknown]
  - Anaemia [Unknown]
  - Dizziness [Unknown]
  - Melaena [Unknown]
